FAERS Safety Report 11173739 (Version 1)
Quarter: 2015Q2

REPORT INFORMATION
  Report Type: Spontaneous
  Country: US (occurrence: None)
  Receive Date: 20150605
  Receipt Date: 20150605
  Transmission Date: 20150821
  Serious: Yes (Death, Hospitalization)
  Sender: FDA-Public Use
  Company Number: INS201505-000222

PATIENT
  Age: 85 Year
  Sex: Male
  Weight: 95.26 kg

DRUGS (13)
  1. MEGACE (MEGESTROL ACETATE) (MEGESTROL ACETATE) [Concomitant]
  2. FINASTERIDE. [Concomitant]
     Active Substance: FINASTERIDE
  3. DURAGESIC [Concomitant]
     Active Substance: FENTANYL
  4. ASPIRIN (ACETYLSALICYLIC ACID) [Concomitant]
     Active Substance: ASPIRIN
  5. SUCRALFATE. [Concomitant]
     Active Substance: SUCRALFATE
  6. CALCIUM [Concomitant]
     Active Substance: CALCIUM
  7. LYRICA [Concomitant]
     Active Substance: PREGABALIN
  8. AMITIZA [Concomitant]
     Active Substance: LUBIPROSTONE
  9. DIAZEPAM. [Concomitant]
     Active Substance: DIAZEPAM
  10. FUROSEMIDE. [Concomitant]
     Active Substance: FUROSEMIDE
  11. SUBSYS [Suspect]
     Active Substance: FENTANYL
     Indication: BREAKTHROUGH PAIN
     Dosage: 100 MCG, MORE THAN 4 TIMES NOT BEFORE 4 HOURS)
     Dates: start: 20150309
  12. METOPROLOL [Concomitant]
     Active Substance: METOPROLOL
  13. PROTONIX [Concomitant]
     Active Substance: PANTOPRAZOLE SODIUM

REACTIONS (6)
  - Renal cancer [None]
  - Blood albumin decreased [None]
  - Malignant neoplasm progression [None]
  - Blood glucose increased [None]
  - Metastases to kidney [None]
  - Hospice care [None]
